FAERS Safety Report 12438355 (Version 1)
Quarter: 2016Q2

REPORT INFORMATION
  Report Type: Spontaneous
  Country: US (occurrence: US)
  Receive Date: 20160606
  Receipt Date: 20160606
  Transmission Date: 20160815
  Serious: Yes (Other)
  Sender: FDA-Public Use
  Company Number: US-PFIZER INC-2016279440

PATIENT
  Age: 26 Year
  Sex: Female

DRUGS (7)
  1. FLUOROURACIL. [Suspect]
     Active Substance: FLUOROURACIL
     Indication: OVARIAN CANCER METASTATIC
     Dosage: 750 MG/M2, CYCLIC
     Route: 042
  2. PEPTICHEMIO [Suspect]
     Active Substance: PEPTICHEMIO
     Indication: OVARIAN CANCER METASTATIC
  3. CISPLATIN. [Suspect]
     Active Substance: CISPLATIN
     Indication: OVARIAN CANCER METASTATIC
     Dosage: 100 MG/M2, CYCLIC
     Route: 042
  4. FLUOROURACIL. [Suspect]
     Active Substance: FLUOROURACIL
     Dosage: 750 MG/M2, CYCLIC
     Route: 033
  5. DOXORUBICIN HCL [Suspect]
     Active Substance: DOXORUBICIN HYDROCHLORIDE
     Indication: OVARIAN CANCER METASTATIC
     Dosage: 50 MG/M2, CYCLIC
     Route: 042
  6. BLEOMYCIN [Suspect]
     Active Substance: BLEOMYCIN SULFATE
     Indication: OVARIAN CANCER METASTATIC
     Dosage: 45 IU, CYCLIC
     Route: 033
  7. CYCLOPHOSPHAMIDE. [Suspect]
     Active Substance: CYCLOPHOSPHAMIDE
     Indication: OVARIAN CANCER METASTATIC
     Dosage: 750 MG/M2, CYCLIC
     Route: 042

REACTIONS (15)
  - Nephropathy toxic [None]
  - Neoplasm malignant [None]
  - Hypercalcaemia [None]
  - Pulmonary embolism [None]
  - Hepatic vein thrombosis [None]
  - Blood phosphorus increased [None]
  - Pleural effusion [None]
  - Renal vein thrombosis [None]
  - Blood parathyroid hormone decreased [None]
  - Disseminated intravascular coagulation [Unknown]
  - Disease prodromal stage [None]
  - Oliguria [None]
  - Blood phosphorus decreased [None]
  - Hypotension [None]
  - Pulmonary infarction [None]
